FAERS Safety Report 15316087 (Version 2)
Quarter: 2018Q3

REPORT INFORMATION
  Report Type: Spontaneous
  Country: US (occurrence: US)
  Receive Date: 20180824
  Receipt Date: 20180831
  Transmission Date: 20181010
  Serious: Yes (Other)
  Sender: FDA-Public Use
  Company Number: US-PFIZER INC-2018337097

PATIENT
  Age: 9 Year
  Sex: Male

DRUGS (5)
  1. METHOTREXATE SODIUM. [Suspect]
     Active Substance: METHOTREXATE SODIUM
     Indication: DIFFUSE LARGE B-CELL LYMPHOMA STAGE III
     Dosage: 15 MG, CYCLIC (15 MG IT, DAY 1,CYCLE 1)
     Route: 037
  2. VINCRISTINE SULFATE. [Suspect]
     Active Substance: VINCRISTINE SULFATE
     Indication: DIFFUSE LARGE B-CELL LYMPHOMA STAGE III
     Dosage: 1 MG/M2, CYCLIC (DAY 1,CYCLE 1)
     Route: 042
  3. CYCLOPHOSPHAMIDE. [Suspect]
     Active Substance: CYCLOPHOSPHAMIDE
     Indication: DIFFUSE LARGE B-CELL LYMPHOMA STAGE III
     Dosage: 300 MG/M2, CYCLIC (DAY 1,CYCLE 1)
     Route: 042
  4. PREDNISONE. [Suspect]
     Active Substance: PREDNISONE
     Indication: DIFFUSE LARGE B-CELL LYMPHOMA STAGE III
     Dosage: 60 MG/M2, CYCLIC (DAYS 1?7, CYCLE 1)
     Route: 048
  5. HYDROCORTISONE SODIUM SUCCINATE [Suspect]
     Active Substance: HYDROCORTISONE SODIUM SUCCINATE
     Indication: DIFFUSE LARGE B-CELL LYMPHOMA STAGE III
     Dosage: 15 MG, CYCLIC (15 MG IT, DAY 1, CYCLE 1)
     Route: 037

REACTIONS (2)
  - Hepatic enzyme increased [Unknown]
  - Neutropenia [Unknown]
